FAERS Safety Report 19698746 (Version 14)
Quarter: 2022Q1

REPORT INFORMATION
  Report Type: Report from Study
  Country: KR (occurrence: None)
  Receive Date: 20210813
  Receipt Date: 20220114
  Transmission Date: 20220423
  Serious: Yes (Hospitalization)
  Sender: FDA-Public Use
  Company Number: KR-EISAI MEDICAL RESEARCH-EC-2021-097687

PATIENT
  Age: 62 Year
  Sex: Male
  Weight: 84.8 kg

DRUGS (18)
  1. LENVATINIB [Suspect]
     Active Substance: LENVATINIB
     Indication: Renal cell carcinoma
     Route: 048
     Dates: start: 20210701, end: 20210805
  2. LENVATINIB [Suspect]
     Active Substance: LENVATINIB
     Dosage: STARTING DOSE AT 20 MG, DOSE REDUCED TO 14 MG
     Route: 048
     Dates: start: 20210826
  3. PEMBROLIZUMAB [Suspect]
     Active Substance: PEMBROLIZUMAB
     Indication: Renal cell carcinoma
     Route: 041
     Dates: start: 20210701, end: 20210701
  4. PEMBROLIZUMAB [Suspect]
     Active Substance: PEMBROLIZUMAB
     Route: 041
     Dates: start: 20210826
  5. URSODIOL [Concomitant]
     Active Substance: URSODIOL
     Dates: start: 20190103
  6. LEVOTHYROXINE SODIUM [Concomitant]
     Active Substance: LEVOTHYROXINE SODIUM
     Dates: start: 20190502
  7. FLUVASTATIN SODIUM [Concomitant]
     Active Substance: FLUVASTATIN SODIUM
     Dates: start: 20200123
  8. METFORMIN [Concomitant]
     Active Substance: METFORMIN HYDROCHLORIDE
     Dates: start: 20200609, end: 20210806
  9. LOSARTAN [Concomitant]
     Active Substance: LOSARTAN
     Dates: start: 20210420
  10. GEMIGLIPTIN TARTRATE [Concomitant]
     Dates: start: 20210420, end: 20210806
  11. CODEINE [Concomitant]
     Active Substance: CODEINE
     Dates: start: 20210623, end: 20210804
  12. NALOXONE HYDROCHLORIDE\OXYCODONE HYDROCHLORIDE [Concomitant]
     Active Substance: NALOXONE HYDROCHLORIDE\OXYCODONE HYDROCHLORIDE
     Dates: start: 20210623, end: 20210804
  13. PREDNISOLONE [Concomitant]
     Active Substance: PREDNISOLONE
     Dates: start: 20210714, end: 20210804
  14. LACTICARE [Concomitant]
     Dates: start: 20210714
  15. UREA [Concomitant]
     Active Substance: UREA
     Dates: start: 20210714
  16. TRANEXAMIC ACID [Concomitant]
     Active Substance: TRANEXAMIC ACID
     Dates: start: 20210714
  17. MEGESTROL ACETATE [Concomitant]
     Active Substance: MEGESTROL ACETATE
     Dates: start: 20210714
  18. CHLORPHENIRAMINE [Concomitant]
     Active Substance: CHLORPHENIRAMINE
     Dates: start: 20210805, end: 20210805

REACTIONS (2)
  - Pneumonitis [Recovered/Resolved]
  - Pancreatitis [Recovered/Resolved]

NARRATIVE: CASE EVENT DATE: 20210805
